FAERS Safety Report 15469581 (Version 1)
Quarter: 2018Q4

REPORT INFORMATION
  Report Type: Spontaneous
  Country: HR (occurrence: HR)
  Receive Date: 20181005
  Receipt Date: 20181005
  Transmission Date: 20190205
  Serious: Yes (Hospitalization, Other)
  Sender: FDA-Public Use
  Company Number: HR-CELGENEUS-HRV-20180910377

PATIENT
  Age: 73 Year
  Sex: Male
  Weight: 66 kg

DRUGS (14)
  1. CLOPIDOGREL [Concomitant]
     Active Substance: CLOPIDOGREL BISULFATE
     Indication: ACUTE MYOCARDIAL INFARCTION
     Dosage: 75 MILLIGRAM
     Route: 048
     Dates: start: 20180613
  2. LAMOTRIGINE. [Concomitant]
     Active Substance: LAMOTRIGINE
     Indication: EPILEPSY
     Route: 048
  3. PREGABALINE [Concomitant]
     Active Substance: PREGABALIN
     Indication: RESTLESS LEGS SYNDROME
     Dosage: 150 MILLIGRAM
     Route: 048
     Dates: start: 201212
  4. FUROSEMIDE. [Concomitant]
     Active Substance: FUROSEMIDE
     Indication: PROPHYLAXIS
     Dosage: 60 MILLIGRAM
     Route: 048
     Dates: start: 20180626
  5. BISOPROLOL [Concomitant]
     Active Substance: BISOPROLOL
     Indication: CARDIAC DISORDER
     Dosage: 1.25 MILLIGRAM
     Route: 048
     Dates: start: 20180612
  6. TRAMADOL. [Concomitant]
     Active Substance: TRAMADOL
     Indication: ANALGESIC THERAPY
     Dosage: 100 MILLIGRAM
     Route: 048
     Dates: start: 20180905, end: 20180910
  7. DIAZEPAM. [Concomitant]
     Active Substance: DIAZEPAM
     Indication: SEIZURE
     Dosage: 2 MILLIGRAM
     Route: 048
     Dates: start: 2012
  8. TAMSULOSINE [Concomitant]
     Active Substance: TAMSULOSIN HYDROCHLORIDE
     Indication: HYPERPLASIA
     Dosage: .4 MILLIGRAM
     Route: 048
     Dates: start: 2009
  9. ENOXAPARIN [Concomitant]
     Active Substance: ENOXAPARIN
     Indication: ARTERIAL BYPASS OCCLUSION
     Dosage: 1.2 MILLIGRAM
     Route: 058
     Dates: start: 20180904, end: 20180910
  10. VENETOCLAX. [Concomitant]
     Active Substance: VENETOCLAX
     Indication: ACUTE MYELOID LEUKAEMIA
     Route: 065
  11. ENOXAPARIN [Concomitant]
     Active Substance: ENOXAPARIN
     Indication: ACUTE CORONARY SYNDROME
     Dosage: 1.2 MILLIGRAM
     Route: 058
     Dates: start: 20180807, end: 20180810
  12. ACETYLSALICYLIC ACID [Concomitant]
     Active Substance: ASPIRIN
     Indication: ACUTE CORONARY SYNDROME
     Dosage: 100 MILLIGRAM
     Route: 048
     Dates: start: 20180613
  13. AZACITIDINE. [Suspect]
     Active Substance: AZACITIDINE
     Indication: ACUTE MYELOID LEUKAEMIA
     Route: 058
     Dates: start: 20180528
  14. RANITIDINE. [Concomitant]
     Active Substance: RANITIDINE
     Indication: STRESS ULCER
     Route: 048

REACTIONS (2)
  - Arterial bypass occlusion [Recovered/Resolved]
  - Arterial bypass occlusion [Recovered/Resolved]

NARRATIVE: CASE EVENT DATE: 20180806
